FAERS Safety Report 17587992 (Version 1)
Quarter: 2020Q1

REPORT INFORMATION
  Report Type: Spontaneous
  Country: CA (occurrence: CA)
  Receive Date: 20200327
  Receipt Date: 20200327
  Transmission Date: 20200409
  Serious: Yes (Other)
  Sender: FDA-Public Use
  Company Number: CA-TEVA-2020-CA-1214923

PATIENT
  Age: 18 Year
  Sex: Male

DRUGS (4)
  1. PROPOFOL. [Suspect]
     Active Substance: PROPOFOL
     Indication: SEDATIVE THERAPY
     Route: 065
  2. FENTANYL. [Concomitant]
     Active Substance: FENTANYL
     Indication: SEDATIVE THERAPY
     Route: 042
  3. LORAZEPAM. [Concomitant]
     Active Substance: LORAZEPAM
     Route: 042
  4. MORPHINE [Concomitant]
     Active Substance: MORPHINE
     Route: 042

REACTIONS (3)
  - Apnoeic attack [Recovered/Resolved]
  - Oxygen saturation decreased [Recovered/Resolved]
  - Overdose [Recovered/Resolved]
